FAERS Safety Report 4283791-2 (Version None)
Quarter: 2004Q1

REPORT INFORMATION
  Report Type: 
  Country: None (occurrence: None)
  Receive Date: 20040115
  Receipt Date: 20030415
  Transmission Date: 20041129
  Serious: Yes (Other)
  Sender: FDA-Public Use
  Company Number: NSADSS2003017923

PATIENT
  Age: 85 Year
  Sex: Female

DRUGS (1)
  1. DOXIL [Suspect]
     Indication: OVARIAN CANCER
     Dosage: INTRAVENOUS DRIP
     Route: 041

REACTIONS (7)
  - FAECAL INCONTINENCE [None]
  - FLUSHING [None]
  - HYPERSENSITIVITY [None]
  - LOSS OF CONSCIOUSNESS [None]
  - PRURITUS [None]
  - URINARY INCONTINENCE [None]
  - URTICARIA [None]
